FAERS Safety Report 9179376 (Version 2)
Quarter: 2013Q3

REPORT INFORMATION
  Report Type: Spontaneous
  Country: US (occurrence: US)
  Receive Date: 20130321
  Receipt Date: 20130830
  Transmission Date: 20140515
  Serious: Yes (Other)
  Sender: FDA-Public Use
  Company Number: US-ROCHE-720288

PATIENT
  Age: 29 Year
  Sex: Female
  Weight: 81.6 kg

DRUGS (1)
  1. ACCUTANE [Suspect]
     Indication: ACNE
     Route: 048
     Dates: start: 19920127, end: 19920628

REACTIONS (8)
  - Colitis ulcerative [Not Recovered/Not Resolved]
  - Gastrointestinal injury [Unknown]
  - Depression [Not Recovered/Not Resolved]
  - Inflammatory bowel disease [Unknown]
  - Proctitis ulcerative [Unknown]
  - Polyp [Unknown]
  - Dizziness [Unknown]
  - Haematochezia [Unknown]
